FAERS Safety Report 22234192 (Version 1)
Quarter: 2023Q2

REPORT INFORMATION
  Report Type: Spontaneous
  Country: US (occurrence: None)
  Receive Date: 20230420
  Receipt Date: 20230420
  Transmission Date: 20230721
  Serious: No
  Sender: FDA-Public Use
  Company Number: US-ROCHE-3172360

PATIENT
  Age: 72 Year
  Sex: Male
  Weight: 82.628 kg

DRUGS (3)
  1. ESBRIET [Suspect]
     Active Substance: PIRFENIDONE
     Indication: Lung disorder
     Dosage: TWO 267 MG PILLS 3 TIMES PER DAY
     Route: 048
  2. WARFARIN [Concomitant]
     Active Substance: WARFARIN
     Indication: Anticoagulant therapy
     Route: 048
  3. MEXILETINE [Concomitant]
     Active Substance: MEXILETINE
     Indication: Cardiovascular event prophylaxis
     Route: 048

REACTIONS (2)
  - Blood disorder [Not Recovered/Not Resolved]
  - Off label use [Unknown]

NARRATIVE: CASE EVENT DATE: 20220830
